FAERS Safety Report 5401228-4 (Version None)
Quarter: 2007Q3

REPORT INFORMATION
  Report Type: 
  Country: None (occurrence: None)
  Receive Date: 20070726
  Receipt Date: 20070709
  Transmission Date: 20080115
  Serious: Yes (Hospitalization)
  Sender: FDA-Public Use
  Company Number: 20073949

PATIENT
  Age: 52 Year
  Sex: Male

DRUGS (2)
  1. LIORESAL [Suspect]
     Indication: MUSCLE SPASTICITY
     Dosage: MCG, DAILY, INTRATHECAL
     Route: 037
  2. AMIKACIN, KEFLEX, LACTULOSE AND SODIUM TABLETS [Concomitant]

REACTIONS (5)
  - ERYTHEMA [None]
  - HYPERAMMONAEMIA [None]
  - HYPERNATRAEMIA [None]
  - MEDICAL DEVICE SITE REACTION [None]
  - URINARY TRACT INFECTION [None]
